FAERS Safety Report 11258765 (Version 1)
Quarter: 2015Q3

REPORT INFORMATION
  Report Type: Spontaneous
  Country: US (occurrence: US)
  Receive Date: 20150710
  Receipt Date: 20150710
  Transmission Date: 20151125
  Serious: No
  Sender: FDA-Public Use
  Company Number: US-PURDUE-USA-2014-0116936

PATIENT
  Age: 58 Year
  Sex: Male

DRUGS (2)
  1. BUTRANS [Suspect]
     Active Substance: BUPRENORPHINE
     Dosage: 5 MCG/HR, WEEKLY
     Route: 062
     Dates: start: 20140714, end: 20140808
  2. BUTRANS [Suspect]
     Active Substance: BUPRENORPHINE
     Indication: MIGRAINE
     Dosage: 10 MCG/HR, WEEKLY
     Route: 062
     Dates: start: 20140728

REACTIONS (2)
  - Inadequate analgesia [Not Recovered/Not Resolved]
  - Drug ineffective [Not Recovered/Not Resolved]

NARRATIVE: CASE EVENT DATE: 20140714
